FAERS Safety Report 17803273 (Version 1)
Quarter: 2020Q2

REPORT INFORMATION
  Report Type: Spontaneous
  Country: CA (occurrence: CA)
  Receive Date: 20200519
  Receipt Date: 20200519
  Transmission Date: 20200714
  Serious: Yes (Hospitalization)
  Sender: FDA-Public Use
  Company Number: CA-ROCHE-2598487

PATIENT
  Age: 41 Year
  Sex: Female
  Weight: 117 kg

DRUGS (1)
  1. ACTEMRA [Suspect]
     Active Substance: TOCILIZUMAB
     Indication: RHEUMATOID ARTHRITIS
     Route: 042

REACTIONS (11)
  - Weight increased [Recovered/Resolved]
  - Haematochezia [Recovered/Resolved]
  - Hypertension [Recovered/Resolved]
  - Swelling [Recovered/Resolved]
  - Amenorrhoea [Recovered/Resolved]
  - Abdominal pain [Recovered/Resolved]
  - Abdominal pain upper [Recovered/Resolved]
  - Diverticulitis [Recovered/Resolved]
  - Headache [Recovered/Resolved]
  - Hepatic steatosis [Recovered/Resolved]
  - Blood urine present [Recovered/Resolved]
